FAERS Safety Report 20172309 (Version 1)
Quarter: 2021Q4

REPORT INFORMATION
  Report Type: Report from Study
  Country: GB (occurrence: GB)
  Receive Date: 20211210
  Receipt Date: 20211210
  Transmission Date: 20220303
  Serious: Yes (Other)
  Sender: FDA-Public Use
  Company Number: GB-TAKEDA-2021TEU010234

PATIENT

DRUGS (3)
  1. COLCHICINE [Suspect]
     Active Substance: COLCHICINE
     Indication: COVID-19
     Dosage: 1 MILLIGRAM
     Route: 065
  2. COLCHICINE [Suspect]
     Active Substance: COLCHICINE
     Dosage: 500 MICROGRAM
     Route: 065
  3. COLCHICINE [Suspect]
     Active Substance: COLCHICINE
     Dosage: 500 MICROGRAM, BID
     Route: 065

REACTIONS (1)
  - Acute kidney injury [Unknown]
